FAERS Safety Report 11238908 (Version 1)
Quarter: 2015Q3

REPORT INFORMATION
  Report Type: Report from Study
  Country: KR (occurrence: KR)
  Receive Date: 20150706
  Receipt Date: 20150706
  Transmission Date: 20151125
  Serious: Yes (Hospitalization)
  Sender: FDA-Public Use
  Company Number: KR-AMGEN-KORCT2015065553

PATIENT
  Age: 58 Year
  Sex: Female

DRUGS (102)
  1. CYCLOPHOSPHAMIDE. [Concomitant]
     Active Substance: CYCLOPHOSPHAMIDE
     Dosage: 680 MG, UNK
     Route: 042
     Dates: start: 20150521, end: 20150521
  2. PALONOSETRON [Concomitant]
     Active Substance: PALONOSETRON
     Dosage: 0.25 MG, UNK
     Route: 042
     Dates: start: 20150611, end: 20150611
  3. DEXRAZOXANE. [Concomitant]
     Active Substance: DEXRAZOXANE
     Dosage: 750 MG, UNK
     Route: 042
     Dates: start: 20150319, end: 20150319
  4. APREPITANT. [Concomitant]
     Active Substance: APREPITANT
     Dosage: 80 MG, UNK
     Route: 048
     Dates: start: 20150320, end: 20150321
  5. METOCLOPRAMIDE HCL [Concomitant]
     Active Substance: METOCLOPRAMIDE HYDROCHLORIDE
     Dosage: 30 MG, UNK
     Route: 048
     Dates: start: 20150409, end: 20150411
  6. METOCLOPRAMIDE HCL [Concomitant]
     Active Substance: METOCLOPRAMIDE HYDROCHLORIDE
     Dosage: 30 MG, UNK
     Route: 048
     Dates: start: 20150430, end: 20150502
  7. RANITIDINE [Concomitant]
     Active Substance: RANITIDINE\RANITIDINE HYDROCHLORIDE
     Dosage: 300 MG, UNK
     Route: 048
     Dates: start: 20150611, end: 20150613
  8. CEFOBACTAM [Concomitant]
     Dosage: 2 G, UNK
     Route: 042
     Dates: start: 20150416, end: 20150416
  9. TOBRAMYCIN. [Concomitant]
     Active Substance: TOBRAMYCIN
     Dosage: 200 MG, UNK
     Route: 042
     Dates: start: 20150507, end: 20150509
  10. MEGASTROL [Concomitant]
     Dosage: 800 MG, UNK
     Route: 048
     Dates: start: 20150528, end: 20150602
  11. TRESTAN                            /00056201/ [Concomitant]
     Dosage: 2CAP.
     Route: 048
     Dates: start: 20150416, end: 20150418
  12. PHAZYME                            /06269601/ [Concomitant]
     Dosage: 95 MG, UNK
     Route: 048
     Dates: start: 20150327, end: 20150331
  13. DARBEPOETIN ALFA [Concomitant]
     Active Substance: DARBEPOETIN ALFA
     Dosage: 357 MUG, UNK
     Route: 058
     Dates: start: 20150417, end: 20150417
  14. CEFTRIAXONE. [Concomitant]
     Active Substance: CEFTRIAXONE
     Dosage: 2 G, UNK
     Route: 042
     Dates: start: 20150504, end: 20150507
  15. PEGFILGRASTIM [Suspect]
     Active Substance: PEGFILGRASTIM
     Dosage: 6 MG, 1X/3WEEKS
     Route: 058
     Dates: start: 20150501
  16. CYCLOPHOSPHAMIDE. [Concomitant]
     Active Substance: CYCLOPHOSPHAMIDE
     Dosage: 750 MG, UNK
     Route: 042
     Dates: start: 20150319, end: 20150319
  17. DIMENHYDRINATE. [Concomitant]
     Active Substance: DIMENHYDRINATE
     Dosage: 150 MG, UNK
     Route: 048
     Dates: start: 20150430, end: 20150502
  18. TOBRAMYCIN. [Concomitant]
     Active Substance: TOBRAMYCIN
     Dosage: 200 MG, UNK
     Route: 042
     Dates: start: 20150326, end: 20150327
  19. LOPERMIDE [Concomitant]
     Dosage: 6 MG, UNK
     Route: 048
     Dates: start: 20150422, end: 20150429
  20. PEGFILGRASTIM [Suspect]
     Active Substance: PEGFILGRASTIM
     Indication: FEBRILE NEUTROPENIA
     Dosage: 6 MG, 1X/3WEEKS
     Route: 058
     Dates: start: 20150320
  21. PEGFILGRASTIM [Suspect]
     Active Substance: PEGFILGRASTIM
     Dosage: 6 MG, 1X/3WEEKS
     Route: 058
     Dates: start: 20150522
  22. DOCETAXEL. [Concomitant]
     Active Substance: DOCETAXEL
     Dosage: 100 MG, UNK
     Route: 042
     Dates: start: 20150611, end: 20150611
  23. DEXAMETHASONE. [Concomitant]
     Active Substance: DEXAMETHASONE
     Dosage: 10 MG, UNK
     Route: 042
     Dates: start: 20150319, end: 20150319
  24. DEXAMETHASONE. [Concomitant]
     Active Substance: DEXAMETHASONE
     Dosage: 3 MG, UNK
     Route: 048
     Dates: start: 20150501, end: 20150502
  25. PALONOSETRON [Concomitant]
     Active Substance: PALONOSETRON
     Dosage: 0.25 MG, UNK
     Route: 042
     Dates: start: 20150430, end: 20150430
  26. LEGALON [Concomitant]
     Active Substance: MILK THISTLE
     Dosage: 420 MG, UNK
     Route: 048
     Dates: start: 20150319, end: 20150326
  27. APREPITANT. [Concomitant]
     Active Substance: APREPITANT
     Dosage: 125 MG, UNK
     Route: 048
     Dates: start: 20150409, end: 20150409
  28. METOCLOPRAMIDE HCL [Concomitant]
     Active Substance: METOCLOPRAMIDE HYDROCHLORIDE
     Dosage: 30 MG, UNK
     Route: 048
     Dates: start: 20150611, end: 20150613
  29. FILGRASTIM [Concomitant]
     Active Substance: FILGRASTIM
     Dosage: 150 MUG, UNK
     Route: 058
     Dates: start: 20150416, end: 20150416
  30. FILGRASTIM [Concomitant]
     Active Substance: FILGRASTIM
     Dosage: 150 MUG, UNK
     Route: 058
     Dates: start: 20150506, end: 20150508
  31. TOBRAMYCIN. [Concomitant]
     Active Substance: TOBRAMYCIN
     Dosage: 200 MG, UNK
     Route: 042
     Dates: start: 20150416, end: 20150416
  32. VITAMEDIN                          /00176001/ [Concomitant]
     Dosage: 50 MG, UNK
     Route: 048
     Dates: start: 20150416, end: 20150418
  33. KETOROLAC [Concomitant]
     Active Substance: KETOROLAC\KETOROLAC TROMETHAMINE
     Dosage: 30 MG, UNK
     Route: 042
     Dates: start: 20150505, end: 20150505
  34. DOXORUBICIN [Concomitant]
     Active Substance: DOXORUBICIN
     Dosage: 75 MG, UNK
     Route: 042
     Dates: start: 20150430, end: 20150430
  35. DEXRAZOXANE. [Concomitant]
     Active Substance: DEXRAZOXANE
     Dosage: 680 MG, UNK
     Route: 042
     Dates: start: 20150611, end: 20150611
  36. APREPITANT. [Concomitant]
     Active Substance: APREPITANT
     Dosage: 125 MG, UNK
     Route: 048
     Dates: start: 20150430, end: 20150430
  37. DIMENHYDRINATE. [Concomitant]
     Active Substance: DIMENHYDRINATE
     Dosage: 150 MG, UNK
     Route: 048
     Dates: start: 20150319, end: 20150321
  38. DIMENHYDRINATE. [Concomitant]
     Active Substance: DIMENHYDRINATE
     Dosage: 150 MG, UNK
     Route: 048
     Dates: start: 20150409, end: 20150411
  39. DIMENHYDRINATE. [Concomitant]
     Active Substance: DIMENHYDRINATE
     Dosage: 1500 MG, UNK
     Route: 048
     Dates: start: 20150521, end: 20150523
  40. METOCLOPRAMIDE HCL [Concomitant]
     Active Substance: METOCLOPRAMIDE HYDROCHLORIDE
     Dosage: 30 MG, UNK
     Route: 048
     Dates: start: 20150319, end: 20150321
  41. CEFOBACTAM [Concomitant]
     Dosage: 2 G, UNK
     Route: 042
     Dates: start: 20150507, end: 20150508
  42. SEPTRIN [Concomitant]
     Active Substance: SULFAMETHOXAZOLE\TRIMETHOPRIM
     Dosage: 800 MG, UNK
     Route: 048
     Dates: start: 20150326, end: 20150328
  43. DICLOFENAC [Concomitant]
     Active Substance: DICLOFENAC
     Dosage: 75 MG, UNK
     Route: 030
     Dates: start: 20150417, end: 20150417
  44. ORNITHINE ASPARTATE [Concomitant]
     Active Substance: ORNITHINE ASPARTATE
     Dosage: 10 G, UNK
     Route: 042
     Dates: start: 20150505, end: 20150509
  45. DOCETAXEL. [Concomitant]
     Active Substance: DOCETAXEL
     Dosage: 112 MG, UNK
     Route: 042
     Dates: start: 20150430, end: 20150430
  46. DOXORUBICIN [Concomitant]
     Active Substance: DOXORUBICIN
     Dosage: 75 MG, UNK
     Route: 042
     Dates: start: 20150319, end: 20150319
  47. DOXORUBICIN [Concomitant]
     Active Substance: DOXORUBICIN
     Dosage: 75 MG, UNK
     Route: 042
     Dates: start: 20150409, end: 20150409
  48. DEXAMETHASONE. [Concomitant]
     Active Substance: DEXAMETHASONE
     Dosage: 10 MG, UNK
     Route: 042
     Dates: start: 20150521, end: 20150521
  49. PALONOSETRON [Concomitant]
     Active Substance: PALONOSETRON
     Dosage: 0.25 MG, UNK
     Route: 042
     Dates: start: 20150521, end: 20150521
  50. DEXRAZOXANE. [Concomitant]
     Active Substance: DEXRAZOXANE
     Dosage: 750 MG, UNK
     Route: 042
     Dates: start: 20150409, end: 20150409
  51. DEXRAZOXANE. [Concomitant]
     Active Substance: DEXRAZOXANE
     Dosage: 680 MG, UNK
     Route: 042
     Dates: start: 20150521, end: 20150521
  52. PENNEL                             /01570505/ [Concomitant]
     Dosage: 3CAP
     Route: 048
     Dates: start: 20150319, end: 20150326
  53. RISENEXPLUS [Concomitant]
     Dosage: 35 MG, UNK
     Route: 048
     Dates: start: 20150312
  54. APREPITANT. [Concomitant]
     Active Substance: APREPITANT
     Dosage: 80 MG, UNK
     Route: 048
     Dates: start: 20150522, end: 20150523
  55. APREPITANT. [Concomitant]
     Active Substance: APREPITANT
     Dosage: 125 MG, UNK
     Route: 048
     Dates: start: 20150611, end: 20150611
  56. RANITIDINE [Concomitant]
     Active Substance: RANITIDINE\RANITIDINE HYDROCHLORIDE
     Dosage: 300 MG, UNK
     Route: 048
     Dates: start: 20150430, end: 20150502
  57. FILGRASTIM [Concomitant]
     Active Substance: FILGRASTIM
     Dosage: 150 MUG, UNK
     Route: 058
     Dates: start: 20150528, end: 20150528
  58. MEGASTROL [Concomitant]
     Dosage: 200 ML, UNK
     Route: 048
     Dates: start: 20150416, end: 20150418
  59. TRESTAN                            /00056201/ [Concomitant]
     Dosage: UNK
     Route: 048
     Dates: start: 20150326, end: 20150327
  60. VITAMEDIN                          /00176001/ [Concomitant]
     Dosage: 50 MG, UNK
     Route: 048
     Dates: start: 20150507, end: 20150508
  61. FERRIC HYDROXIDE [Concomitant]
     Active Substance: FERRIC HYDROXIDE
     Dosage: 100 MG, UNK
     Route: 042
     Dates: start: 20150430, end: 20150430
  62. ACETAMINOPHEN. [Concomitant]
     Active Substance: ACETAMINOPHEN
     Dosage: 2600 MG, UNK
     Route: 048
     Dates: start: 20150507, end: 20150507
  63. PEGFILGRASTIM [Suspect]
     Active Substance: PEGFILGRASTIM
     Dosage: 6 MG, 1X/3WEEKS
     Route: 058
     Dates: start: 20150410
  64. DOCETAXEL. [Concomitant]
     Active Substance: DOCETAXEL
     Dosage: 100 MG, UNK
     Route: 042
     Dates: start: 20150521, end: 20150521
  65. DOXORUBICIN [Concomitant]
     Active Substance: DOXORUBICIN
     Dosage: 68 MG, UNK
     Route: 042
     Dates: start: 20150521, end: 20150521
  66. CYCLOPHOSPHAMIDE. [Concomitant]
     Active Substance: CYCLOPHOSPHAMIDE
     Dosage: 750 MG, UNK
     Route: 042
     Dates: start: 20150409, end: 20150409
  67. DEXAMETHASONE. [Concomitant]
     Active Substance: DEXAMETHASONE
     Dosage: 10 MG, UNK
     Route: 042
     Dates: start: 20150430, end: 20150430
  68. DEXAMETHASONE. [Concomitant]
     Active Substance: DEXAMETHASONE
     Dosage: 10 MG, UNK
     Route: 042
     Dates: start: 20150611, end: 20150611
  69. DEXAMETHASONE. [Concomitant]
     Active Substance: DEXAMETHASONE
     Dosage: 3 MG, UNK
     Route: 048
     Dates: start: 20150320, end: 20150321
  70. DEXAMETHASONE. [Concomitant]
     Active Substance: DEXAMETHASONE
     Dosage: 3 MG, UNK
     Route: 048
     Dates: start: 20150410, end: 20150411
  71. PALONOSETRON [Concomitant]
     Active Substance: PALONOSETRON
     Dosage: 0.25 MG, UNK
     Route: 042
     Dates: start: 20150319, end: 20150319
  72. APREPITANT. [Concomitant]
     Active Substance: APREPITANT
     Dosage: 125 MG, UNK
     Route: 048
     Dates: start: 20150521, end: 20150521
  73. APREPITANT. [Concomitant]
     Active Substance: APREPITANT
     Dosage: 80 MG, UNK
     Route: 048
     Dates: start: 20150612, end: 20150613
  74. METOCLOPRAMIDE HCL [Concomitant]
     Active Substance: METOCLOPRAMIDE HYDROCHLORIDE
     Dosage: 30 MG, UNK
     Route: 048
     Dates: start: 20150521, end: 20150523
  75. MEGASTROL [Concomitant]
     Dosage: 800 MG, UNK
     Route: 048
     Dates: start: 20150507, end: 20150508
  76. DICLOFENAC [Concomitant]
     Active Substance: DICLOFENAC
     Dosage: 75 MG, UNK
     Route: 030
     Dates: start: 20150506, end: 20150506
  77. FERRIC HYDROXIDE [Concomitant]
     Active Substance: FERRIC HYDROXIDE
     Dosage: 100 MG, UNK
     Route: 042
     Dates: start: 20150508, end: 20150508
  78. PEGFILGRASTIM [Suspect]
     Active Substance: PEGFILGRASTIM
     Dosage: 6 MG, 1X/3WEEKS
     Route: 058
     Dates: start: 20150612
  79. CYCLOPHOSPHAMIDE. [Concomitant]
     Active Substance: CYCLOPHOSPHAMIDE
     Dosage: 750 MG, UNK
     Route: 042
     Dates: start: 20150430, end: 20150430
  80. DEXAMETHASONE. [Concomitant]
     Active Substance: DEXAMETHASONE
     Dosage: 10 MG, UNK
     Route: 042
     Dates: start: 20150409, end: 20150409
  81. PALONOSETRON [Concomitant]
     Active Substance: PALONOSETRON
     Dosage: 0.25 MG, UNK
     Route: 042
     Dates: start: 20150409, end: 20150409
  82. DEXRAZOXANE. [Concomitant]
     Active Substance: DEXRAZOXANE
     Dosage: 750 MG, UNK
     Route: 042
     Dates: start: 20150430, end: 20150430
  83. APREPITANT. [Concomitant]
     Active Substance: APREPITANT
     Dosage: 125 MG, UNK
     Route: 048
     Dates: start: 20150319, end: 20150319
  84. APREPITANT. [Concomitant]
     Active Substance: APREPITANT
     Dosage: 80 MG, UNK
     Route: 048
     Dates: start: 20150501, end: 20150502
  85. DIMENHYDRINATE. [Concomitant]
     Active Substance: DIMENHYDRINATE
     Dosage: 150 MG, UNK
     Route: 048
     Dates: start: 20150611, end: 20150613
  86. RANITIDINE [Concomitant]
     Active Substance: RANITIDINE\RANITIDINE HYDROCHLORIDE
     Dosage: 300 MG, UNK
     Route: 048
     Dates: start: 20150521, end: 20150523
  87. FILGRASTIM [Concomitant]
     Active Substance: FILGRASTIM
     Dosage: 150 MUG, UNK
     Route: 058
     Dates: start: 20150326, end: 20150327
  88. CEFOBACTAM [Concomitant]
     Dosage: 2 G, UNK
     Route: 042
     Dates: start: 20150326, end: 20150327
  89. MEGASTROL [Concomitant]
     Dosage: 800 MG, UNK
     Route: 048
     Dates: start: 20150326, end: 20150327
  90. DARBEPOETIN ALFA [Concomitant]
     Active Substance: DARBEPOETIN ALFA
     Dosage: 365 MUG, UNK
     Route: 042
     Dates: start: 20150611, end: 20150611
  91. DOCETAXEL. [Concomitant]
     Active Substance: DOCETAXEL
     Dosage: 112 MG, UNK
     Route: 042
     Dates: start: 20150519, end: 20150519
  92. DOCETAXEL. [Concomitant]
     Active Substance: DOCETAXEL
     Dosage: 112 MG, UNK
     Route: 042
     Dates: start: 20150409, end: 20150409
  93. DOXORUBICIN [Concomitant]
     Active Substance: DOXORUBICIN
     Dosage: 68 MG, UNK
     Route: 042
     Dates: start: 20150611, end: 20150611
  94. CYCLOPHOSPHAMIDE. [Concomitant]
     Active Substance: CYCLOPHOSPHAMIDE
     Dosage: 680 MG, UNK
     Route: 042
     Dates: start: 20150611, end: 20150611
  95. DEXAMETHASONE. [Concomitant]
     Active Substance: DEXAMETHASONE
     Dosage: 3 MG, UNK
     Route: 048
     Dates: start: 20150522, end: 20150524
  96. DEXAMETHASONE. [Concomitant]
     Active Substance: DEXAMETHASONE
     Dosage: 3 MG, UNK
     Route: 048
     Dates: start: 20150612, end: 20150613
  97. APREPITANT. [Concomitant]
     Active Substance: APREPITANT
     Dosage: 80 MG, UNK
     Route: 048
     Dates: start: 20150410, end: 20150411
  98. RANITIDINE [Concomitant]
     Active Substance: RANITIDINE\RANITIDINE HYDROCHLORIDE
     Dosage: 300 MG, UNK
     Route: 048
     Dates: start: 20150319, end: 20150321
  99. RANITIDINE [Concomitant]
     Active Substance: RANITIDINE\RANITIDINE HYDROCHLORIDE
     Dosage: 300 MG, UNK
     Route: 048
     Dates: start: 20150409, end: 20150411
  100. VITAMEDIN                          /00176001/ [Concomitant]
     Dosage: 50 MG, UNK
     Route: 048
     Dates: start: 20150326, end: 20150327
  101. COUGH SYRUP [Concomitant]
     Active Substance: DEXTROMETHORPHAN HYDROBROMIDE\GUAIFENESIN
     Dosage: 60 ML, UNK
     Route: 048
     Dates: start: 20150422, end: 20150429
  102. CHLORPHENAMINE [Concomitant]
     Active Substance: CHLORPHENIRAMINE MALEATE
     Dosage: 4 MG, UNK
     Route: 042
     Dates: start: 20150505, end: 20150505

REACTIONS (1)
  - Febrile neutropenia [Recovered/Resolved]

NARRATIVE: CASE EVENT DATE: 20150618
